FAERS Safety Report 17587455 (Version 1)
Quarter: 2020Q1

REPORT INFORMATION
  Report Type: Spontaneous
  Country: US (occurrence: US)
  Receive Date: 20200326
  Receipt Date: 20200326
  Transmission Date: 20200409
  Serious: Yes (Other)
  Sender: FDA-Public Use
  Company Number: US-JNJFOC-20200336233

PATIENT
  Age: 50 Year
  Sex: Female
  Weight: 125.62 kg

DRUGS (3)
  1. ADEMPAS [Suspect]
     Active Substance: RIOCIGUAT
     Indication: PULMONARY ARTERIAL HYPERTENSION
     Dosage: 1.0 MG, TID
     Route: 048
     Dates: start: 20200312
  2. OPSUMIT [Concomitant]
     Active Substance: MACITENTAN
  3. RIVAROXABAN [Suspect]
     Active Substance: RIVAROXABAN
     Indication: PRODUCT USED FOR UNKNOWN INDICATION
     Route: 048

REACTIONS (4)
  - Headache [Unknown]
  - Constipation [Recovering/Resolving]
  - Haemorrhoidal haemorrhage [Unknown]
  - Fluid retention [Unknown]

NARRATIVE: CASE EVENT DATE: 202003
